FAERS Safety Report 8036332-8 (Version None)
Quarter: 2012Q1

REPORT INFORMATION
  Report Type: 
  Country: None (occurrence: None)
  Receive Date: 20120111
  Receipt Date: 20111111
  Transmission Date: 20120608
  Serious: No
  Sender: FDA-Public Use
  Company Number: US-GLAXOSMITHKLINE-A0952810A

PATIENT
  Age: 76 Year
  Sex: Male

DRUGS (2)
  1. NO CONCURRENT MEDICATION [Concomitant]
  2. JALYN [Suspect]
     Indication: PROSTATOMEGALY
     Dosage: 1CAP PER DAY
     Route: 048
     Dates: start: 20110101

REACTIONS (7)
  - MUSCULOSKELETAL PAIN [None]
  - THERAPEUTIC RESPONSE UNEXPECTED [None]
  - MUSCLE INJURY [None]
  - MYALGIA [None]
  - SWELLING [None]
  - HYPOAESTHESIA [None]
  - OEDEMA PERIPHERAL [None]
